FAERS Safety Report 18231588 (Version 1)
Quarter: 2020Q3

REPORT INFORMATION
  Report Type: Spontaneous
  Country: US (occurrence: US)
  Receive Date: 20200904
  Receipt Date: 20200904
  Transmission Date: 20201103
  Serious: No
  Sender: FDA-Public Use
  Company Number: US-BIOGEN-2020BI00906185

PATIENT
  Sex: Female

DRUGS (2)
  1. TECFIDERA [Suspect]
     Active Substance: DIMETHYL FUMARATE
     Indication: MULTIPLE SCLEROSIS
     Route: 048
     Dates: start: 20200722
  2. TECFIDERA [Suspect]
     Active Substance: DIMETHYL FUMARATE
     Route: 065
     Dates: end: 20200816

REACTIONS (8)
  - Diarrhoea [Unknown]
  - Dyspepsia [Unknown]
  - Gastrointestinal infection [Unknown]
  - Muscle spasms [Unknown]
  - Nausea [Unknown]
  - Hot flush [Recovered/Resolved]
  - Pruritus [Not Recovered/Not Resolved]
  - Abdominal discomfort [Unknown]
